FAERS Safety Report 6515048-0 (Version None)
Quarter: 2009Q4

REPORT INFORMATION
  Report Type: 
  Country: None (occurrence: None)
  Receive Date: 20091223
  Receipt Date: 20091207
  Transmission Date: 20100525
  Serious: Yes (Hospitalization, Other)
  Sender: FDA-Public Use
  Company Number: IT-JNJFOC-20091205595

PATIENT
  Age: 65 Year
  Sex: Male

DRUGS (1)
  1. KOLIBRI [Suspect]
     Indication: PAIN
     Route: 048

REACTIONS (11)
  - APPETITE DISORDER [None]
  - DRY MOUTH [None]
  - FORMICATION [None]
  - HYPERHIDROSIS [None]
  - ILLUSION [None]
  - MUSCLE CONTRACTIONS INVOLUNTARY [None]
  - NIGHTMARE [None]
  - SKIN IRRITATION [None]
  - SLEEP DISORDER [None]
  - SOMNOLENCE [None]
  - TREMOR [None]
